FAERS Safety Report 7346841-2 (Version None)
Quarter: 2011Q1

REPORT INFORMATION
  Report Type: 
  Country: None (occurrence: None)
  Receive Date: 20110311
  Receipt Date: 20110228
  Transmission Date: 20110831
  Serious: Yes (Other)
  Sender: FDA-Public Use
  Company Number: GB-SANOFI-AVENTIS-2011SA004181

PATIENT
  Age: 73 Year

DRUGS (11)
  1. FOLINIC ACID [Suspect]
  2. BEVACIZUMAB [Suspect]
     Dates: start: 20100713, end: 20100713
  3. ASASANTIN [Concomitant]
     Dates: start: 20090601
  4. OXALIPLATIN [Suspect]
  5. OXALIPLATIN [Suspect]
  6. METFORMIN [Concomitant]
  7. BEVACIZUMAB [Suspect]
  8. FOLINIC ACID [Suspect]
  9. SIMVASTATIN [Concomitant]
  10. FLUOROURACIL [Suspect]
  11. FLUOROURACIL [Suspect]

REACTIONS (1)
  - TRANSIENT ISCHAEMIC ATTACK [None]
